FAERS Safety Report 6779122-6 (Version None)
Quarter: 2010Q2

REPORT INFORMATION
  Report Type: 
  Country: None (occurrence: None)
  Receive Date: 20100618
  Receipt Date: 20100611
  Transmission Date: 20101027
  Serious: Yes (Other)
  Sender: FDA-Public Use
  Company Number: US-PFIZER INC-2010073552

PATIENT
  Age: 55 Year
  Sex: Male

DRUGS (1)
  1. AMLODIPINE BESYLATE [Suspect]

REACTIONS (3)
  - DRY MOUTH [None]
  - LIP SWELLING [None]
  - TONGUE DISORDER [None]
